FAERS Safety Report 7152577-3 (Version None)
Quarter: 2010Q4

REPORT INFORMATION
  Report Type: 
  Country: None (occurrence: None)
  Receive Date: 20101209
  Receipt Date: 20101209
  Transmission Date: 20110411
  Serious: Yes (Hospitalization)
  Sender: FDA-Public Use
  Company Number: None

PATIENT
  Sex: Male

DRUGS (6)
  1. LISINOPRIL [Suspect]
     Indication: HYPERTENSION
  2. SIMVASTATIN [Concomitant]
  3. METOPROLOL [Concomitant]
  4. CARVEDILOL [Concomitant]
  5. IBUPROFEN [Concomitant]
  6. VITAMIN E [Concomitant]

REACTIONS (1)
  - ANGIOEDEMA [None]
